FAERS Safety Report 9858771 (Version 1)
Quarter: 2014Q1

REPORT INFORMATION
  Report Type: Spontaneous
  Country: US (occurrence: None)
  Receive Date: 20140130
  Receipt Date: 20140130
  Transmission Date: 20141002
  Serious: Yes (Other)
  Sender: FDA-Public Use
  Company Number: None

PATIENT
  Age: 10 Day
  Sex: Female

DRUGS (3)
  1. TPN [Suspect]
  2. HOSPIRA TUBING SET [Suspect]
  3. MEDFUSION SYRINGE PUMP [Concomitant]

REACTIONS (4)
  - Urine output decreased [None]
  - Pulse pressure decreased [None]
  - Device leakage [None]
  - Incorrect dose administered [None]
